FAERS Safety Report 10097294 (Version 6)
Quarter: 2014Q3

REPORT INFORMATION
  Report Type: Report from Study
  Country: AU (occurrence: AU)
  Receive Date: 20140422
  Receipt Date: 20140723
  Transmission Date: 20150326
  Serious: Yes (Hospitalization, Other)
  Sender: FDA-Public Use
  Company Number: AU-BRISTOL-MYERS SQUIBB COMPANY-20335642

PATIENT
  Age: 66 Year
  Sex: Male

DRUGS (21)
  1. ENDEP [Concomitant]
     Active Substance: AMITRIPTYLINE HYDROCHLORIDE
  2. NEXIUM [Concomitant]
     Active Substance: ESOMEPRAZOLE MAGNESIUM
  3. ORENCIA [Suspect]
     Active Substance: ABATACEPT
     Indication: RHEUMATOID ARTHRITIS
     Dosage: INTR ON 15FEB14?RESDTRD ON 17MAR14
     Route: 042
     Dates: start: 20100908
  4. FOLIC ACID. [Concomitant]
     Active Substance: FOLIC ACID
  5. POTASSIUM [Concomitant]
     Active Substance: POTASSIUM
  6. ZINC [Concomitant]
     Active Substance: ZINC\ZINC CHLORIDE
  7. GLUCOSAMINE [Concomitant]
     Active Substance: GLUCOSAMINE
  8. MULTIVITAMIN [Concomitant]
     Active Substance: VITAMINS
  9. MACRODANTIN [Concomitant]
     Active Substance: NITROFURANTOIN
  10. ACTONEL [Concomitant]
     Active Substance: RISEDRONATE SODIUM
  11. VITAMIN D [Concomitant]
     Active Substance: CHOLECALCIFEROL
  12. ATENOL [Concomitant]
     Active Substance: ATENOLOL
  13. PLAQUENIL [Concomitant]
     Active Substance: HYDROXYCHLOROQUINE SULFATE
  14. PANADOL [Concomitant]
     Active Substance: ACETAMINOPHEN
  15. OSTEOEZE [Concomitant]
  16. CALCIUM [Concomitant]
     Active Substance: CALCIUM
  17. NIZAX [Concomitant]
  18. NAPROXEN. [Concomitant]
     Active Substance: NAPROXEN
  19. ISOPTIN SR [Concomitant]
     Active Substance: VERAPAMIL HYDROCHLORIDE
  20. CRESTOR [Concomitant]
     Active Substance: ROSUVASTATIN CALCIUM
  21. METHOTREXATE [Concomitant]
     Active Substance: METHOTREXATE

REACTIONS (4)
  - Fall [Unknown]
  - Red blood cell sedimentation rate increased [Recovered/Resolved]
  - Osteomyelitis [Recovered/Resolved with Sequelae]
  - Rotator cuff syndrome [Recovering/Resolving]

NARRATIVE: CASE EVENT DATE: 20140224
